FAERS Safety Report 4478957-2 (Version None)
Quarter: 2004Q4

REPORT INFORMATION
  Report Type: 
  Country: None (occurrence: None)
  Receive Date: 20041015
  Receipt Date: 20041004
  Transmission Date: 20050328
  Serious: Yes (Hospitalization)
  Sender: FDA-Public Use
  Company Number: URSO-2004-022

PATIENT
  Age: 40 Year
  Sex: Female

DRUGS (4)
  1. URSO 100 (URSODEOXYCHOLIC ACID) [Suspect]
     Indication: HEPATITIS C
     Dosage: 600 MG ; PO
     Route: 048
     Dates: start: 20040805, end: 20040914
  2. CARNACULIN (KALLIDINOGENASE) [Suspect]
     Dosage: PO
     Route: 048
     Dates: end: 20040914
  3. ADONA (AC-17) (CARBAZOCHROME SODIUM SULFONATE) [Suspect]
     Dosage: PO
     Route: 048
     Dates: end: 20040914
  4. GLIMICRON (GLICLAZIDE) [Concomitant]
     Dates: start: 20040904, end: 20040914

REACTIONS (2)
  - DISEASE RECURRENCE [None]
  - HEPATITIS C [None]
